FAERS Safety Report 9539126 (Version 3)
Quarter: 2013Q4

REPORT INFORMATION
  Report Type: Spontaneous
  Country: IT (occurrence: IT)
  Receive Date: 20130920
  Receipt Date: 20131121
  Transmission Date: 20140711
  Serious: Yes (Hospitalization)
  Sender: FDA-Public Use
  Company Number: IT-MERCK-1309ITA007696

PATIENT
  Age: 75 Year
  Sex: Male

DRUGS (8)
  1. LOSARTAN POTASSIUM [Suspect]
     Indication: HYPERTENSION
     Dosage: 50 MG, QD
     Route: 048
     Dates: start: 20110101, end: 20130801
  2. LOSARTAN POTASSIUM [Suspect]
     Dosage: 50 MG, QD
     Route: 048
     Dates: start: 2013
  3. CARVASIN [Suspect]
     Indication: ABDOMINAL PAIN UPPER
     Dosage: 5 MG, ONCE
     Route: 060
     Dates: start: 20130801, end: 20130801
  4. CARDIRENE [Concomitant]
     Indication: PROPHYLAXIS
     Route: 048
  5. VYTORIN 10 MG / 20 MG COMPRESSE [Concomitant]
     Indication: DYSLIPIDAEMIA
     Route: 048
  6. SYMBICORT [Concomitant]
     Indication: CHRONIC OBSTRUCTIVE PULMONARY DISEASE
     Dosage: FORMULATION: INHALATOR
     Route: 055
  7. LANSOPRAZOLE [Concomitant]
     Dosage: UNK
  8. LANSOPRAZOLE [Concomitant]
     Dosage: UNK

REACTIONS (2)
  - Syncope [Recovered/Resolved]
  - Hypotension [Recovered/Resolved]
